FAERS Safety Report 7361687-7 (Version None)
Quarter: 2011Q1

REPORT INFORMATION
  Report Type: 
  Country: None (occurrence: None)
  Receive Date: 20110318
  Receipt Date: 20110309
  Transmission Date: 20110831
  Serious: Yes (Other)
  Sender: FDA-Public Use
  Company Number: US-JNJFOC-20110305988

PATIENT
  Age: 51 Year
  Sex: Male

DRUGS (3)
  1. UNSPECIFIED NEBULIZER [Concomitant]
     Indication: PRODUCT USED FOR UNKNOWN INDICATION
  2. NICOTINE PATCH [Suspect]
     Indication: SMOKING CESSATION THERAPY
     Route: 062
  3. NICOTINE POLACRILEX [Suspect]
     Indication: SMOKING CESSATION THERAPY
     Route: 048

REACTIONS (3)
  - DIARRHOEA [None]
  - BLOOD PRESSURE INCREASED [None]
  - ABDOMINAL DISCOMFORT [None]
